FAERS Safety Report 7776831-7 (Version None)
Quarter: 2011Q3

REPORT INFORMATION
  Report Type: 
  Country: None (occurrence: None)
  Receive Date: 20110926
  Receipt Date: 20110916
  Transmission Date: 20111222
  Serious: Yes (Other)
  Sender: FDA-Public Use
  Company Number: ZA-B.I. PHARMACEUTICALS,INC./RIDGEFIELD-2011-AP-00486ZA

PATIENT
  Age: 39 Year
  Sex: Male

DRUGS (2)
  1. PRADAXA [Suspect]
     Indication: PULMONARY EMBOLISM
     Dosage: 150 MG
     Dates: start: 20110101
  2. PRADAXA [Suspect]
     Indication: RETINAL ARTERY THROMBOSIS

REACTIONS (1)
  - PULMONARY EMBOLISM [None]
